FAERS Safety Report 7790453-3 (Version None)
Quarter: 2011Q3

REPORT INFORMATION
  Report Type: 
  Country: None (occurrence: None)
  Receive Date: 20110930
  Receipt Date: 20110921
  Transmission Date: 20111222
  Serious: Yes (Hospitalization)
  Sender: FDA-Public Use
  Company Number: DE-JNJFOC-20100908087

PATIENT
  Sex: Male
  Weight: 33.2 kg

DRUGS (11)
  1. REMICADE [Suspect]
     Indication: CROHN'S DISEASE
     Route: 042
     Dates: start: 20080320, end: 20100727
  2. DEXAMETHASONE [Concomitant]
     Route: 047
  3. ANTIBIOTICS [Concomitant]
     Indication: CROHN'S DISEASE
  4. MONTELUKAST SODIUM [Concomitant]
  5. MESALAMINE [Concomitant]
     Route: 048
  6. OMEPRAZOLE [Concomitant]
  7. ALBUTEROL [Concomitant]
     Route: 055
  8. CALCILAC [Concomitant]
  9. DESLORATADINE [Concomitant]
     Indication: HYPERSENSITIVITY
  10. VIANI [Concomitant]
  11. ADVAIR DISKUS 100/50 [Concomitant]

REACTIONS (1)
  - STAPHYLOCOCCAL INFECTION [None]
